FAERS Safety Report 25118879 (Version 2)
Quarter: 2025Q2

REPORT INFORMATION
  Report Type: Spontaneous
  Country: US (occurrence: US)
  Receive Date: 20250325
  Receipt Date: 20250422
  Transmission Date: 20250717
  Serious: Yes (Disabling)
  Sender: DR REDDYS
  Company Number: US-DRL-USA-USA/2025/03/003870

PATIENT
  Age: 57 Year
  Sex: Female
  Weight: 44.91 kg

DRUGS (2)
  1. NICOTINE [Suspect]
     Active Substance: NICOTINE
     Indication: Smoking cessation therapy
     Dosage: LAST DOSE OF NICOTINE WAS ADMINISTERED ON 09-MAR-2025
     Route: 062
     Dates: start: 20250303
  2. NICOTINE [Suspect]
     Active Substance: NICOTINE
     Route: 062
     Dates: end: 20250309

REACTIONS (2)
  - Therapeutic product effect increased [Recovered/Resolved]
  - Anxiety [Unknown]

NARRATIVE: CASE EVENT DATE: 20250303
